FAERS Safety Report 9318272 (Version 1)
Quarter: 2013Q2

REPORT INFORMATION
  Report Type: Spontaneous
  Country: US (occurrence: US)
  Receive Date: 20130530
  Receipt Date: 20130530
  Transmission Date: 20140414
  Serious: No
  Sender: FDA-Public Use
  Company Number: US-GLAXOSMITHKLINE-A1010397A

PATIENT
  Age: 37 Year
  Sex: Female

DRUGS (5)
  1. VENTOLIN [Suspect]
     Indication: ASTHMA
     Route: 055
     Dates: start: 2011
  2. SYMBICORT [Concomitant]
  3. DAYQUIL [Concomitant]
  4. AMOXICILLIN [Concomitant]
  5. PREDNISONE [Concomitant]

REACTIONS (4)
  - Malaise [Unknown]
  - Respiratory tract congestion [Unknown]
  - Overdose [Unknown]
  - Heart rate increased [Unknown]
